FAERS Safety Report 9450362 (Version 2)
Quarter: 2013Q3

REPORT INFORMATION
  Report Type: Spontaneous
  Country: GB (occurrence: None)
  Receive Date: 20130807
  Receipt Date: 20130903
  Transmission Date: 20140515
  Serious: Yes (Life-Threatening, Hospitalization, Other)
  Sender: FDA-Public Use
  Company Number: AUR-APL-2013-05403

PATIENT
  Age: 30 Year
  Sex: Female
  Weight: 61 kg

DRUGS (2)
  1. FINASTERIDE (FINASTERIDE) [Suspect]
     Route: 048
  2. SERTRALINE (SERTRALINE) [Concomitant]
     Indication: POLYCYSTIC OVARIES
     Route: 048
     Dates: start: 201102, end: 201305

REACTIONS (2)
  - Breast cancer female [None]
  - Intraductal proliferative breast lesion [None]
